FAERS Safety Report 13951835 (Version 1)
Quarter: 2017Q3

REPORT INFORMATION
  Report Type: Other
  Country: GB (occurrence: AT)
  Receive Date: 20170908
  Receipt Date: 20170908
  Transmission Date: 20171128
  Serious: Yes (Hospitalization, Other)
  Sender: FDA-Public Use
  Company Number: AT-INTERNATIONAL MEDICATION SYSTEMS, LIMITED-2025806

PATIENT
  Age: 44 Year
  Sex: Female

DRUGS (1)
  1. XYLANAEST [Suspect]
     Active Substance: LIDOCAINE HYDROCHLORIDE
     Indication: PAIN

REACTIONS (4)
  - Dyspnoea [Recovered/Resolved]
  - Tachycardia [Recovered/Resolved]
  - Anaphylactic reaction [Recovered/Resolved]
  - Hypotension [Recovered/Resolved]
